FAERS Safety Report 5152672-4 (Version None)
Quarter: 2006Q4

REPORT INFORMATION
  Report Type: 
  Country: None (occurrence: None)
  Receive Date: 20061109
  Receipt Date: 20061016
  Transmission Date: 20070319
  Serious: Yes (Other)
  Sender: FDA-Public Use
  Company Number: 200610331BBE

PATIENT

DRUGS (1)
  1. IGIV (MANUFACTURER UNKNOWN) [Suspect]
     Dosage: INTRAVENOUS
     Route: 042

REACTIONS (1)
  - THROMBOSIS [None]
